FAERS Safety Report 4764071-5 (Version None)
Quarter: 2005Q3

REPORT INFORMATION
  Report Type: 
  Country: None (occurrence: None)
  Receive Date: 20050908
  Receipt Date: 20050617
  Transmission Date: 20060218
  Serious: Yes (Hospitalization, Other)
  Sender: FDA-Public Use
  Company Number: US-MERCK-0506USA02958

PATIENT
  Age: 39 Year
  Sex: Male
  Weight: 70 kg

DRUGS (15)
  1. VIOXX [Suspect]
     Indication: MIGRAINE
     Route: 048
     Dates: start: 20010801, end: 20030601
  2. XANAX [Concomitant]
     Indication: BIPOLAR DISORDER
     Route: 065
     Dates: start: 20000101
  3. XANAX [Concomitant]
     Indication: PANIC DISORDER
     Route: 065
     Dates: start: 20000101
  4. PAXIL [Concomitant]
     Indication: BIPOLAR DISORDER
     Route: 065
     Dates: start: 20000101
  5. PAXIL [Concomitant]
     Indication: PANIC DISORDER
     Route: 065
     Dates: start: 20000101
  6. PROZAC [Concomitant]
     Indication: BIPOLAR DISORDER
     Route: 065
     Dates: start: 20000101
  7. PROZAC [Concomitant]
     Indication: PANIC DISORDER
     Route: 065
     Dates: start: 20000101
  8. ZOLOFT [Concomitant]
     Indication: BIPOLAR DISORDER
     Route: 065
     Dates: start: 20000101
  9. ZOLOFT [Concomitant]
     Indication: PANIC DISORDER
     Route: 065
     Dates: start: 20000101
  10. WELLBUTRIN [Concomitant]
     Indication: BIPOLAR DISORDER
     Route: 065
     Dates: start: 20000101
  11. WELLBUTRIN [Concomitant]
     Indication: PANIC DISORDER
     Route: 065
     Dates: start: 20000101
  12. KLONOPIN [Concomitant]
     Indication: BIPOLAR DISORDER
     Route: 065
     Dates: start: 20000101
  13. KLONOPIN [Concomitant]
     Indication: PANIC DISORDER
     Route: 065
     Dates: start: 20000101
  14. INDERAL [Concomitant]
     Indication: HYPERTENSION
     Route: 065
     Dates: start: 20030101
  15. [THERAPY UNSPECIFIED] [Concomitant]
     Indication: MIGRAINE
     Route: 065
     Dates: start: 20020101

REACTIONS (8)
  - CEREBROVASCULAR ACCIDENT [None]
  - DRUG HYPERSENSITIVITY [None]
  - GUN SHOT WOUND [None]
  - HYPOTENSION [None]
  - INDURATION [None]
  - PULMONARY HYPERTENSION [None]
  - ROAD TRAFFIC ACCIDENT [None]
  - VEIN DISORDER [None]
